FAERS Safety Report 7356324-1 (Version None)
Quarter: 2011Q1

REPORT INFORMATION
  Report Type: 
  Country: None (occurrence: None)
  Receive Date: 20110316
  Receipt Date: 20110308
  Transmission Date: 20110831
  Serious: Yes (Other)
  Sender: FDA-Public Use
  Company Number: US-ROCHE-756152

PATIENT
  Sex: Female
  Weight: 80.4 kg

DRUGS (12)
  1. REBETOL [Suspect]
     Indication: HEPATITIS C
     Dosage: MORNING AND EVENING
     Route: 048
     Dates: start: 20100301
  2. PROTONIX [Concomitant]
  3. HYDROXYZINE [Concomitant]
  4. SINGULAIR [Concomitant]
  5. LORATADINE [Concomitant]
  6. PROAIR HFA [Concomitant]
  7. GABAPENTIN [Concomitant]
  8. PEGASYS [Suspect]
     Indication: HEPATITIS C
     Route: 058
     Dates: start: 20100416
  9. KLONOPIN [Concomitant]
  10. SYMBICORT [Concomitant]
     Dosage: DRUG NAME: SYMBICORT
  11. SAVELLA [Concomitant]
  12. CORTEF [Concomitant]
     Dosage: DRUG NAME: CLORTEF

REACTIONS (2)
  - ACNE [None]
  - TUMOUR NECROSIS [None]
